FAERS Safety Report 20724379 (Version 1)
Quarter: 2022Q2

REPORT INFORMATION
  Report Type: Spontaneous
  Country: IN (occurrence: IN)
  Receive Date: 20220419
  Receipt Date: 20220419
  Transmission Date: 20220721
  Serious: Yes (Death)
  Sender: FDA-Public Use
  Company Number: IN-PFIZER INC-2021046493

PATIENT
  Age: 55 Year
  Sex: Female

DRUGS (3)
  1. LORLATINIB [Suspect]
     Active Substance: LORLATINIB
     Dosage: 100 MG, 1X/DAY
     Route: 048
     Dates: start: 20201215
  2. PANTACID [PANTOPRAZOLE SODIUM SESQUIHYDRATE] [Concomitant]
     Dosage: 40 MG, 1X/DAY (1-0-0)
  3. ATORVASTATIN CALCIUM [Concomitant]
     Active Substance: ATORVASTATIN CALCIUM
     Dosage: 10 HS

REACTIONS (1)
  - Death [Fatal]
